FAERS Safety Report 15578808 (Version 2)
Quarter: 2019Q1

REPORT INFORMATION
  Report Type: Spontaneous
  Country: US (occurrence: US)
  Receive Date: 20181102
  Receipt Date: 20190305
  Transmission Date: 20190417
  Serious: Yes (Other)
  Sender: FDA-Public Use
  Company Number: US-BRISTOL-MYERS SQUIBB COMPANY-BMS-2018-101586

PATIENT
  Sex: Female

DRUGS (2)
  1. KENALOG-10 [Suspect]
     Active Substance: TRIAMCINOLONE ACETONIDE
     Indication: ECZEMA
     Dosage: 1 DF, TOTAL
     Route: 065
     Dates: start: 20180808, end: 20180808
  2. IBUPROFEN. [Suspect]
     Active Substance: IBUPROFEN
     Indication: BACK PAIN
     Dosage: UNK
     Route: 048
     Dates: start: 201808

REACTIONS (19)
  - Gastrooesophageal reflux disease [Unknown]
  - Hypertension [Unknown]
  - Dysphagia [Unknown]
  - Laryngospasm [Unknown]
  - Limb mass [Recovered/Resolved]
  - Gastrointestinal pain [Unknown]
  - Muscular weakness [Unknown]
  - Weight decreased [Unknown]
  - Vision blurred [Unknown]
  - Rash [Unknown]
  - Ear pain [Unknown]
  - Head discomfort [Unknown]
  - Oesophagitis [Unknown]
  - Tension headache [Unknown]
  - Pharyngitis [Unknown]
  - Back pain [Unknown]
  - Hypoaesthesia [Unknown]
  - Anxiety [Unknown]
  - Middle ear effusion [Unknown]

NARRATIVE: CASE EVENT DATE: 201808
